FAERS Safety Report 21333865 (Version 2)
Quarter: 2022Q3

REPORT INFORMATION
  Report Type: Spontaneous
  Country: TW (occurrence: TW)
  Receive Date: 20220914
  Receipt Date: 20220927
  Transmission Date: 20221027
  Serious: Yes (Hospitalization, Other)
  Sender: FDA-Public Use
  Company Number: TW-MLMSERVICE-20220905-3775500-1

PATIENT
  Age: 49 Year
  Sex: Male

DRUGS (11)
  1. ADRIAMYCIN [Suspect]
     Active Substance: DOXORUBICIN HYDROCHLORIDE
     Indication: Hodgkin^s disease
     Dosage: 8 CYCLES
     Dates: start: 2011
  2. ADRIAMYCIN [Suspect]
     Active Substance: DOXORUBICIN HYDROCHLORIDE
     Indication: Hodgkin^s disease stage IV
  3. CYTARABINE [Suspect]
     Active Substance: CYTARABINE
     Indication: Bone marrow conditioning regimen
     Dosage: CONDITIONING REGIMEN
     Dates: start: 2011
  4. DACARBAZINE [Suspect]
     Active Substance: DACARBAZINE
     Dosage: 8 CYCLES
     Dates: start: 2011
  5. VINBLASTINE [Suspect]
     Active Substance: VINBLASTINE
     Dosage: 8 CYCLES
     Dates: start: 2011
  6. BLEOMYCIN [Suspect]
     Active Substance: BLEOMYCIN SULFATE
     Indication: Hodgkin^s disease
     Dosage: 8 CYCLES
     Dates: start: 2011
  7. BLEOMYCIN [Suspect]
     Active Substance: BLEOMYCIN SULFATE
     Indication: Hodgkin^s disease stage IV
  8. ETOPOSIDE [Suspect]
     Active Substance: ETOPOSIDE
     Indication: Bone marrow conditioning regimen
     Dosage: CONDITIONING REGIMEN
     Dates: start: 2011
  9. MELPHALAN [Suspect]
     Active Substance: MELPHALAN
     Indication: Bone marrow conditioning regimen
     Dosage: CONDITIONING REGIMEN
     Dates: start: 2011
  10. CARMUSTINE [Suspect]
     Active Substance: CARMUSTINE
     Indication: Bone marrow conditioning regimen
     Dosage: CONDITIONING REGIMEN
     Dates: start: 2011
  11. CYCLOPHOSPHAMIDE [Suspect]
     Active Substance: CYCLOPHOSPHAMIDE
     Indication: Haematopoietic stem cell mobilisation
     Dosage: UNK
     Dates: start: 2011

REACTIONS (2)
  - Acute myeloid leukaemia [Recovered/Resolved]
  - Second primary malignancy [Recovered/Resolved]

NARRATIVE: CASE EVENT DATE: 20210601
